FAERS Safety Report 8911308 (Version 1)
Quarter: 2012Q4

REPORT INFORMATION
  Report Type: 
  Country: US (occurrence: US)
  Receive Date: 20121115
  Receipt Date: 20121115
  Transmission Date: 20130627
  Serious: No
  Sender: FDA-Public Use
  Company Number: US-JNJFOC-20121010799

PATIENT
  Age: 42 Year
  Sex: Female

DRUGS (2)
  1. INVEGA SUSTENNA [Suspect]
     Indication: DELUSION
     Route: 030
  2. INVEGA SUSTENNA [Suspect]
     Indication: HALLUCINATION
     Route: 030

REACTIONS (1)
  - Rhinorrhoea [Unknown]
